FAERS Safety Report 5393450-0 (Version None)
Quarter: 2007Q3

REPORT INFORMATION
  Report Type: 
  Country: None (occurrence: None)
  Receive Date: 20070723
  Receipt Date: 20060601
  Transmission Date: 20080115
  Serious: No
  Sender: FDA-Public Use
  Company Number: A0607609A

PATIENT
  Age: 51 Year
  Sex: Female

DRUGS (4)
  1. AVANDIA [Suspect]
     Route: 048
     Dates: start: 20020101
  2. METFORMIN HCL [Suspect]
     Route: 048
  3. FORTAMET [Suspect]
     Route: 048
  4. ALTACE [Concomitant]

REACTIONS (3)
  - BLOOD GLUCOSE FLUCTUATION [None]
  - NAUSEA [None]
  - THERAPEUTIC RESPONSE DECREASED [None]
